FAERS Safety Report 7271162-6 (Version None)
Quarter: 2011Q1

REPORT INFORMATION
  Report Type: 
  Country: None (occurrence: None)
  Receive Date: 20110202
  Receipt Date: 20110128
  Transmission Date: 20110831
  Serious: No
  Sender: FDA-Public Use
  Company Number: US-PFIZER INC-2011021020

PATIENT
  Age: 55 Year
  Sex: Male

DRUGS (1)
  1. DEPO-TESTOSTERONE [Suspect]
     Dosage: 0.5 ML, ONCE IN EVERY TEN DAYS

REACTIONS (1)
  - BLOOD TESTOSTERONE DECREASED [None]
